FAERS Safety Report 7262031-6 (Version None)
Quarter: 2011Q1

REPORT INFORMATION
  Report Type: 
  Country: None (occurrence: None)
  Receive Date: 20110130
  Receipt Date: 20101104
  Transmission Date: 20110831
  Serious: No
  Sender: FDA-Public Use
  Company Number: US-ABBOTT-10P-163-0683526-00

PATIENT
  Age: 21 Year
  Sex: Female

DRUGS (2)
  1. HUMIRA [Suspect]
     Indication: PSORIASIS
     Dosage: 80 MG LOADING DOSE DAY ONE
     Dates: start: 20101101, end: 20101101
  2. HUMIRA [Suspect]

REACTIONS (2)
  - CHEST DISCOMFORT [None]
  - PAINFUL RESPIRATION [None]
